FAERS Safety Report 24797638 (Version 1)
Quarter: 2025Q1

REPORT INFORMATION
  Report Type: Spontaneous
  Country: US (occurrence: US)
  Receive Date: 20250102
  Receipt Date: 20250102
  Transmission Date: 20250409
  Serious: Yes (Other)
  Sender: STRIDES
  Company Number: US-STRIDES ARCOLAB LIMITED-2024SP017235

PATIENT
  Sex: Female

DRUGS (1)
  1. MEGESTROL ACETATE [Suspect]
     Active Substance: MEGESTROL ACETATE
     Indication: Product used for unknown indication
     Route: 065

REACTIONS (5)
  - Calcinosis [Unknown]
  - Hyperphosphataemia [Unknown]
  - Bone hypertrophy [Unknown]
  - Nephrocalcinosis [Unknown]
  - Limb asymmetry [Unknown]
